FAERS Safety Report 8046388-4 (Version None)
Quarter: 2012Q1

REPORT INFORMATION
  Report Type: 
  Country: None (occurrence: None)
  Receive Date: 20120113
  Receipt Date: 20120110
  Transmission Date: 20120608
  Serious: Yes (Other)
  Sender: FDA-Public Use
  Company Number: US-PFIZER INC-2012007677

PATIENT
  Sex: Male
  Weight: 86.168 kg

DRUGS (3)
  1. CELEBREX [Suspect]
     Indication: ARTHRALGIA
     Dosage: 200 MG, 1X/DAY
     Route: 048
  2. CELEBREX [Suspect]
     Indication: OSTEOARTHRITIS
  3. CHONDROITIN/GLUCOSAMINE [Concomitant]
     Dosage: UNK

REACTIONS (1)
  - RENAL CELL CARCINOMA [None]
